FAERS Safety Report 8394452-2 (Version None)
Quarter: 2012Q2

REPORT INFORMATION
  Report Type: 
  Country: None (occurrence: None)
  Receive Date: 20120530
  Receipt Date: 20120521
  Transmission Date: 20120825
  Serious: Yes (Hospitalization, Other)
  Sender: FDA-Public Use
  Company Number: PHHY2012BR007516

PATIENT
  Sex: Male

DRUGS (7)
  1. DIOVAN [Suspect]
     Indication: BLOOD PRESSURE
     Dosage: 320 MG, UNK
     Route: 048
  2. AMLODIPINE BESYLATE [Concomitant]
     Indication: BLOOD PRESSURE
     Dosage: UNK UKN, QD (IN THE MORNING)
     Dates: start: 20110904
  3. DIOVAN HCT [Suspect]
     Indication: HYPERTENSION
     Dosage: 1 DF (320MG VAL/12.5MG HCTZ), QD
     Dates: start: 20110812, end: 20110826
  4. ATENOLOL [Suspect]
     Indication: BLOOD PRESSURE
     Dosage: 25 MG, QD (AT NIGHT)
  5. SOMALGIN [Concomitant]
     Indication: CARDIAC REHABILITATION THERAPY
     Dosage: 100 MG, QD
     Dates: start: 20110904
  6. ENALAPRIL MALEATE [Concomitant]
     Indication: BLOOD CHOLESTEROL
     Dosage: 5 MG, QD (AFTER DINNER)
     Dates: start: 20110904
  7. DIOVAN HCT [Suspect]
     Dosage: 1 DF (80MG VAL/12.5MG HCTZ), QD

REACTIONS (3)
  - INFARCTION [None]
  - VENOUS OCCLUSION [None]
  - BLOOD PRESSURE INADEQUATELY CONTROLLED [None]
